FAERS Safety Report 13595825 (Version 2)
Quarter: 2019Q4

REPORT INFORMATION
  Report Type: Spontaneous
  Country: US (occurrence: US)
  Receive Date: 20170531
  Receipt Date: 20191022
  Transmission Date: 20200122
  Serious: No
  Sender: FDA-Public Use
  Company Number: US-JNJFOC-20170506855

PATIENT
  Age: 90 Year
  Sex: Female
  Weight: 52.21 kg

DRUGS (1)
  1. PARACETAMOL [Suspect]
     Active Substance: ACETAMINOPHEN
     Indication: ARTHRALGIA
     Dosage: 1 TABLET, 2:00 AM
     Route: 048

REACTIONS (2)
  - Underdose [Unknown]
  - Drug ineffective [Unknown]
